FAERS Safety Report 26015447 (Version 1)
Quarter: 2025Q4

REPORT INFORMATION
  Report Type: Report from Study
  Country: EU (occurrence: EU)
  Receive Date: 20251109
  Receipt Date: 20251109
  Transmission Date: 20260117
  Serious: Yes (Other)
  Sender: ROCHE
  Company Number: EU-ROCHE-10000426837

PATIENT

DRUGS (2)
  1. RITUXIMAB [Suspect]
     Active Substance: RITUXIMAB
     Indication: Anti-myelin-associated glycoprotein associated polyneuropathy
     Dosage: 50-90 MG/M2 ON DAYS 1 AND 2, 6 CYCLES/28 DAYS
     Route: 065
  2. BENDAMUSTINE [Suspect]
     Active Substance: BENDAMUSTINE
     Indication: Anti-myelin-associated glycoprotein associated polyneuropathy
     Dosage: 50-90 MG/M2 ON DAYS 1 AND 2, 6 CYCLES/28 DAYS
     Route: 065

REACTIONS (4)
  - Cytopenia [Unknown]
  - Infection [Unknown]
  - Nausea [Unknown]
  - Vomiting [Unknown]
